FAERS Safety Report 21270858 (Version 1)
Quarter: 2022Q3

REPORT INFORMATION
  Report Type: Spontaneous
  Country: IN (occurrence: IN)
  Receive Date: 20220830
  Receipt Date: 20220830
  Transmission Date: 20221027
  Serious: Yes (Other)
  Sender: FDA-Public Use
  Company Number: IN-PFIZER INC-PV202200051126

PATIENT
  Age: 70 Year
  Sex: Male
  Weight: 56.7 kg

DRUGS (1)
  1. DACOMITINIB [Suspect]
     Active Substance: DACOMITINIB
     Indication: Lung cancer metastatic
     Dosage: 30 MG, 1X/DAY
     Route: 048
     Dates: start: 20220420

REACTIONS (5)
  - Carcinoembryonic antigen increased [Unknown]
  - Decreased appetite [Unknown]
  - Blood pressure systolic increased [Unknown]
  - Paronychia [Unknown]
  - Eye disorder [Unknown]

NARRATIVE: CASE EVENT DATE: 20220601
